FAERS Safety Report 10835170 (Version 1)
Quarter: 2015Q1

REPORT INFORMATION
  Report Type: Spontaneous
  Country: TH (occurrence: TH)
  Receive Date: 20150219
  Receipt Date: 20150219
  Transmission Date: 20150721
  Serious: Yes (Other)
  Sender: FDA-Public Use
  Company Number: TH-CIPLA LTD.-2015TH01124

PATIENT

DRUGS (10)
  1. AMPHOTERICIN B. [Suspect]
     Active Substance: AMPHOTERICIN B
     Indication: PYTHIUM INSIDIOSUM INFECTION
     Dosage: INTRACAMERAL INJECTION TWICE MONTHLY
  2. ITRACONAZOLE. [Suspect]
     Active Substance: ITRACONAZOLE
     Indication: PYTHIUM INSIDIOSUM INFECTION
     Dosage: 2 MONTHS
     Route: 048
  3. AMPHOTERICIN B. [Suspect]
     Active Substance: AMPHOTERICIN B
     Dosage: ANTERIOR CHAMBER IRRIGATION, ONCE MONTHLY
  4. PYTHIUM INSIDIOSUM ANTIGEN VACCINE [Suspect]
     Active Substance: INVESTIGATIONAL PRODUCT
     Indication: PYTHIUM INSIDIOSUM INFECTION
     Dosage: DAY 0, 1 ML
     Route: 058
  5. PYTHIUM INSIDIOSUM ANTIGEN VACCINE [Suspect]
     Active Substance: INVESTIGATIONAL PRODUCT
     Dosage: DAY 14, 1 ML
     Route: 058
  6. AMPHOTERICIN B. [Suspect]
     Active Substance: AMPHOTERICIN B
     Dosage: INTRASTROMAL  INJECTION TWICE MONTHLY
  7. VORICONAZOLE. [Suspect]
     Active Substance: VORICONAZOLE
     Indication: PYTHIUM INSIDIOSUM INFECTION
     Dosage: 12 MONTHS
  8. PYTHIUM INSIDIOSUM ANTIGEN VACCINE [Suspect]
     Active Substance: INVESTIGATIONAL PRODUCT
     Dosage: DAY 7, 1 ML
     Route: 058
  9. AMPHOTERICIN B. [Suspect]
     Active Substance: AMPHOTERICIN B
     Dosage: FOR 0.5 MONTHS
     Route: 061
  10. TERBINAFINE HYDROCHLORIDE. [Suspect]
     Active Substance: TERBINAFINE HYDROCHLORIDE
     Indication: PYTHIUM INSIDIOSUM INFECTION
     Dosage: 12 MONTHS
     Route: 048

REACTIONS (5)
  - Erythema [Unknown]
  - Pruritus [Unknown]
  - Local swelling [Unknown]
  - Blindness [Unknown]
  - Rash erythematous [Unknown]
